FAERS Safety Report 12099301 (Version 1)
Quarter: 2016Q1

REPORT INFORMATION
  Report Type: Report from Study
  Country: US (occurrence: US)
  Receive Date: 20160222
  Receipt Date: 20160222
  Transmission Date: 20160526
  Serious: Yes (Death, Other)
  Sender: FDA-Public Use
  Company Number: US-AMGEN-USASL2016019341

PATIENT
  Age: 85 Year
  Sex: Male

DRUGS (2)
  1. XGEVA [Suspect]
     Active Substance: DENOSUMAB
     Indication: BONE NEOPLASM
  2. XGEVA [Suspect]
     Active Substance: DENOSUMAB
     Indication: NEOPLASM PROSTATE
     Dosage: UNK
     Route: 065

REACTIONS (1)
  - Death [Fatal]
